FAERS Safety Report 4330171-7 (Version None)
Quarter: 2004Q1

REPORT INFORMATION
  Report Type: 
  Country: None (occurrence: None)
  Receive Date: 20040329
  Receipt Date: 20040312
  Transmission Date: 20041129
  Serious: No
  Sender: FDA-Public Use
  Company Number: 2004GB00102

PATIENT
  Sex: Male

DRUGS (1)
  1. ZOLADEX [Suspect]
     Indication: PROSTATE CANCER

REACTIONS (4)
  - BODY TEMPERATURE INCREASED [None]
  - ERYTHEMA [None]
  - LOCAL SWELLING [None]
  - MALAISE [None]
